FAERS Safety Report 17113308 (Version 2)
Quarter: 2019Q4

REPORT INFORMATION
  Report Type: Spontaneous
  Country: SE (occurrence: SE)
  Receive Date: 20191204
  Receipt Date: 20191204
  Transmission Date: 20200122
  Serious: Yes (Hospitalization)
  Sender: FDA-Public Use
  Company Number: SE-CANTON LABORATORIES, LLC-2077478

PATIENT
  Age: 16 Year
  Sex: Female

DRUGS (5)
  1. LERGIGAN (PROMETHAZINE, PROMETHAZINE HYDROCHLORIDE) [Suspect]
     Active Substance: PROMETHAZINE HYDROCHLORIDE
     Route: 048
     Dates: start: 20180913, end: 20180913
  2. ATARAX [Suspect]
     Active Substance: HYDROXYZINE HYDROCHLORIDE
     Route: 048
     Dates: start: 20180913, end: 20180913
  3. NAPROSYN [Suspect]
     Active Substance: NAPROXEN
     Indication: INTENTIONAL OVERDOSE
     Route: 048
     Dates: start: 20180913, end: 20180913
  4. ALVEDON (PARACETAMOL) [Suspect]
     Active Substance: ACETAMINOPHEN
     Route: 048
     Dates: start: 20180913, end: 20180913
  5. MELATONIN (MELATONIN) [Suspect]
     Active Substance: MELATONIN
     Route: 048
     Dates: start: 20180913, end: 20180913

REACTIONS (4)
  - Vomiting [Unknown]
  - Intentional self-injury [Unknown]
  - Intentional overdose [Unknown]
  - Fatigue [Unknown]

NARRATIVE: CASE EVENT DATE: 20180913
